FAERS Safety Report 21170597 (Version 1)
Quarter: 2022Q3

REPORT INFORMATION
  Report Type: Spontaneous
  Country: US (occurrence: None)
  Receive Date: 20220803
  Receipt Date: 20220803
  Transmission Date: 20221026
  Serious: Yes (Death)
  Sender: FDA-Public Use
  Company Number: None

PATIENT
  Age: 71 Year
  Sex: Male
  Weight: 90.72 kg

DRUGS (30)
  1. YERVOY [Suspect]
     Active Substance: IPILIMUMAB
     Indication: Malignant pleural effusion
     Dosage: 80MG  Q3WEEKS IV?
     Route: 042
  2. ALBUTEROL [Concomitant]
     Active Substance: ALBUTEROL
  3. BASAGLAR [Concomitant]
     Active Substance: INSULIN GLARGINE
  4. BREO ELLIPTA [Concomitant]
     Active Substance: FLUTICASONE FUROATE\VILANTEROL TRIFENATATE
  5. CETIRIZINE [Concomitant]
     Active Substance: CETIRIZINE HYDROCHLORIDE
  6. DEXAMETHASONE [Concomitant]
     Active Substance: DEXAMETHASONE
  7. DOXYCYCLINE [Concomitant]
     Active Substance: DOXYCYCLINE
  8. FARXIGA [Concomitant]
     Active Substance: DAPAGLIFLOZIN PROPANEDIOL
  9. FLUTICASONE [Concomitant]
     Active Substance: FLUTICASONE
  10. FOLIC ACID [Concomitant]
     Active Substance: FOLIC ACID
  11. FUROSEMIDE [Concomitant]
     Active Substance: FUROSEMIDE
  12. GLIMEPIRIDE [Concomitant]
     Active Substance: GLIMEPIRIDE
  13. ALBUTEROL\IPRATROPIUM [Concomitant]
     Active Substance: ALBUTEROL\IPRATROPIUM
  14. JANUVIA [Concomitant]
     Active Substance: SITAGLIPTIN PHOSPHATE
  15. KETOCONAZOLE [Concomitant]
     Active Substance: KETOCONAZOLE
  16. LISINOPRIL [Concomitant]
     Active Substance: LISINOPRIL
  17. LYUMJEV [Concomitant]
     Active Substance: INSULIN LISPRO-AABC
  18. METOPROLOL [Concomitant]
     Active Substance: METOPROLOL
  19. MONTELUKAST [Concomitant]
     Active Substance: MONTELUKAST SODIUM
  20. NIFEDIPINE [Concomitant]
     Active Substance: NIFEDIPINE
  21. NOVOLOG [Concomitant]
     Active Substance: INSULIN ASPART
  22. NYSTATIN [Concomitant]
     Active Substance: NYSTATIN
  23. ONDANSETRON [Concomitant]
     Active Substance: ONDANSETRON
  24. PHENAZOPYRIDINE [Concomitant]
     Active Substance: PHENAZOPYRIDINE
  25. PIOGLITAZONE [Concomitant]
     Active Substance: PIOGLITAZONE
  26. PREDNISONE [Concomitant]
     Active Substance: PREDNISONE
  27. SIMVASTATIN [Concomitant]
     Active Substance: SIMVASTATIN
  28. TADALAFIL [Concomitant]
     Active Substance: TADALAFIL
  29. VASCEPA [Concomitant]
     Active Substance: ICOSAPENT ETHYL
  30. VITAMIN B12 [Concomitant]
     Active Substance: CYANOCOBALAMIN

REACTIONS (1)
  - Death [None]
